FAERS Safety Report 11818622 (Version 2)
Quarter: 2017Q1

REPORT INFORMATION
  Report Type: Spontaneous
  Country: US (occurrence: US)
  Receive Date: 20151210
  Receipt Date: 20170116
  Transmission Date: 20170428
  Serious: Yes (Other)
  Sender: FDA-Public Use
  Company Number: US-JNJFOC-20151109412

PATIENT
  Sex: Male
  Weight: 117.85 kg

DRUGS (7)
  1. RISPERDAL [Suspect]
     Active Substance: RISPERIDONE
     Indication: ABNORMAL BEHAVIOUR
     Dosage: VARYING DOSE OF 1 MG AND 4 MG
     Route: 048
     Dates: start: 2011
  2. RISPERDAL [Suspect]
     Active Substance: RISPERIDONE
     Indication: ABNORMAL BEHAVIOUR
     Dosage: 1-4 MG
     Route: 048
     Dates: start: 201206
  3. RISPERDAL [Suspect]
     Active Substance: RISPERIDONE
     Indication: SCHIZOPHRENIA
     Dosage: VARYING DOSE OF 1 MG AND 4 MG
     Route: 048
     Dates: start: 2011
  4. RISPERDAL [Suspect]
     Active Substance: RISPERIDONE
     Indication: SCHIZOPHRENIA
     Dosage: 1-4 MG
     Route: 048
     Dates: end: 201302
  5. RISPERDAL [Suspect]
     Active Substance: RISPERIDONE
     Indication: ABNORMAL BEHAVIOUR
     Dosage: 1-4 MG
     Route: 048
     Dates: end: 201302
  6. RISPERIDONE. [Suspect]
     Active Substance: RISPERIDONE
     Indication: PRODUCT USED FOR UNKNOWN INDICATION
     Route: 048
  7. RISPERDAL [Suspect]
     Active Substance: RISPERIDONE
     Indication: SCHIZOPHRENIA
     Dosage: 1-4 MG
     Route: 048
     Dates: start: 201206

REACTIONS (3)
  - Gynaecomastia [Unknown]
  - Injury [Unknown]
  - Abnormal weight gain [Unknown]

NARRATIVE: CASE EVENT DATE: 2013
